FAERS Safety Report 20898797 (Version 7)
Quarter: 2022Q3

REPORT INFORMATION
  Report Type: Report from Study
  Country: US (occurrence: US)
  Receive Date: 20220601
  Receipt Date: 20220916
  Transmission Date: 20221027
  Serious: No
  Sender: FDA-Public Use
  Company Number: US-NOVARTISTESTPH-NVSC2022US125552

PATIENT
  Age: 36 Year
  Sex: Female

DRUGS (1)
  1. ENTRESTO [Suspect]
     Active Substance: SACUBITRIL\VALSARTAN
     Indication: Cardiac failure chronic
     Dosage: UNK
     Route: 065

REACTIONS (12)
  - Nocturia [Unknown]
  - Influenza like illness [Unknown]
  - Nasal congestion [Unknown]
  - Pain [Unknown]
  - Stress [Recovering/Resolving]
  - Fatigue [Unknown]
  - Cough [Unknown]
  - Oropharyngeal discomfort [Unknown]
  - Initial insomnia [Unknown]
  - Weight increased [Unknown]
  - Product dose omission issue [Unknown]
  - Inappropriate schedule of product administration [Unknown]
